FAERS Safety Report 7487708-9 (Version None)
Quarter: 2011Q2

REPORT INFORMATION
  Report Type: 
  Country: None (occurrence: None)
  Receive Date: 20110518
  Receipt Date: 20110506
  Transmission Date: 20111010
  Serious: No
  Sender: FDA-Public Use
  Company Number: PHHY2011US38991

PATIENT
  Sex: Female
  Weight: 113.38 kg

DRUGS (12)
  1. CLONIDINE [Concomitant]
     Dosage: 0.1 MG, UNK
  2. LEVOTHYROXINE SODIUM [Concomitant]
     Dosage: 100 MG, UNK
  3. TASIGNA [Suspect]
     Dosage: 300 MG, BID
     Route: 048
  4. FUROSEMIDE [Concomitant]
     Dosage: 20 MG, UNK
  5. GABAPENTIN [Concomitant]
     Dosage: 100 MG, UNK
  6. VITAMIN C [Concomitant]
     Dosage: 500 MG, UNK
  7. ACIPHEX [Concomitant]
     Dosage: 20 MG, UNK
  8. CALCIUM CARBONATE [Concomitant]
  9. FIBER-LAX [Concomitant]
     Dosage: 0.52 G, UNK
  10. POTASSIUM PHOSPHATES [Concomitant]
  11. OXYCOD [Concomitant]
     Dosage: 5-325 MG
  12. FERROUS SULFATE TAB [Concomitant]
     Dosage: 325 MG, UNK

REACTIONS (1)
  - ORAL PAIN [None]
